FAERS Safety Report 4516553-9 (Version None)
Quarter: 2004Q4

REPORT INFORMATION
  Report Type: 
  Country: None (occurrence: None)
  Receive Date: 20041012
  Receipt Date: 20040622
  Transmission Date: 20050328
  Serious: No
  Sender: FDA-Public Use
  Company Number: A03200402008

PATIENT
  Age: 82 Year
  Sex: Male

DRUGS (3)
  1. UROXATRAL [Suspect]
     Indication: BENIGN PROSTATIC HYPERPLASIA
     Dosage: 10 MG OD ORAL
     Route: 048
     Dates: start: 20040601, end: 20040601
  2. ATENOLOL [Concomitant]
  3. DIAZEPAM [Concomitant]

REACTIONS (1)
  - OEDEMA PERIPHERAL [None]
